FAERS Safety Report 11551752 (Version 1)
Quarter: 2015Q3

REPORT INFORMATION
  Report Type: Spontaneous
  Country: US (occurrence: US)
  Receive Date: 20150903
  Receipt Date: 20150903
  Transmission Date: 20151125
  Serious: No
  Sender: FDA-Public Use
  Company Number: US-ELI_LILLY_AND_COMPANY-US201005001332

PATIENT
  Sex: Male

DRUGS (8)
  1. HUMALOG [Suspect]
     Active Substance: INSULIN LISPRO
     Dosage: 16.4 U, OTHER
     Route: 058
     Dates: start: 20100504, end: 20100504
  2. HUMALOG [Suspect]
     Active Substance: INSULIN LISPRO
     Dosage: 20 U, OTHER
     Dates: start: 20100504, end: 20100504
  3. HUMALOG [Suspect]
     Active Substance: INSULIN LISPRO
     Dosage: 20 U, OTHER
     Dates: start: 20100504, end: 20100504
  4. HUMALOG [Suspect]
     Active Substance: INSULIN LISPRO
     Dosage: 3.6 U, OTHER
     Route: 058
     Dates: start: 20100504, end: 20100504
  5. HUMALOG [Suspect]
     Active Substance: INSULIN LISPRO
     Dosage: 13.7 U, OTHER
     Route: 058
     Dates: start: 20100504, end: 20100504
  6. HUMALOG [Suspect]
     Active Substance: INSULIN LISPRO
     Indication: DIABETES MELLITUS
     Dosage: 15.5 U, OTHER
     Route: 058
     Dates: start: 20100504, end: 20100504
  7. HUMALOG [Suspect]
     Active Substance: INSULIN LISPRO
     Dosage: 5.6 U, OTHER
     Route: 058
     Dates: start: 20100504, end: 20100504
  8. HUMALOG [Suspect]
     Active Substance: INSULIN LISPRO
     Dosage: 12.6 U, OTHER
     Route: 058
     Dates: start: 20100504, end: 20100504

REACTIONS (5)
  - Influenza like illness [Recovered/Resolved]
  - Blood glucose increased [Recovered/Resolved]
  - Blood glucose increased [Recovered/Resolved]
  - Lethargy [Recovered/Resolved]
  - Drug ineffective [Recovered/Resolved]

NARRATIVE: CASE EVENT DATE: 200908
